FAERS Safety Report 9903073 (Version 4)
Quarter: 2014Q2

REPORT INFORMATION
  Report Type: Report from Study
  Country: IN (occurrence: IN)
  Receive Date: 20140217
  Receipt Date: 20140416
  Transmission Date: 20141212
  Serious: Yes (Death, Life-Threatening, Hospitalization, Disabling, Other)
  Sender: FDA-Public Use
  Company Number: PHHY2013IN110408

PATIENT
  Age: 58 Year
  Sex: Female

DRUGS (5)
  1. SIMULECT [Suspect]
     Indication: RENAL TRANSPLANT
     Dosage: 20 MG, UNK
     Route: 042
     Dates: start: 20130923
  2. SIMULECT [Suspect]
     Dosage: UNK UKN, UNK
  3. TACROLIMUS [Concomitant]
     Indication: IMMUNOSUPPRESSION
     Dosage: 1.5 UKN, BID
     Route: 048
  4. ALTRACINE [Concomitant]
     Dosage: UNK UKN, UNK
     Route: 048
  5. SALMETEROL [Concomitant]
     Dosage: UNK UKN, UNK

REACTIONS (23)
  - Death [Fatal]
  - Zygomycosis [Not Recovered/Not Resolved]
  - Pseudomonas infection [Unknown]
  - Cerebral haemorrhage [Not Recovered/Not Resolved]
  - Fall [Unknown]
  - Coma [Unknown]
  - Convulsion [Unknown]
  - Movement disorder [Unknown]
  - Facial bones fracture [Unknown]
  - Haemorrhage [Unknown]
  - Kidney transplant rejection [Not Recovered/Not Resolved]
  - Blood creatinine increased [Not Recovered/Not Resolved]
  - Dyspnoea [Unknown]
  - Migraine [Not Recovered/Not Resolved]
  - Insomnia [Unknown]
  - Headache [Not Recovered/Not Resolved]
  - Sinusitis [Not Recovered/Not Resolved]
  - Rhinorrhoea [Unknown]
  - Nasopharyngitis [Not Recovered/Not Resolved]
  - Cough [Not Recovered/Not Resolved]
  - Somnolence [Not Recovered/Not Resolved]
  - General physical health deterioration [Unknown]
  - Pain [Unknown]
